FAERS Safety Report 22923995 (Version 2)
Quarter: 2024Q3

REPORT INFORMATION
  Report Type: Spontaneous
  Country: US (occurrence: None)
  Receive Date: 20230908
  Receipt Date: 20240906
  Transmission Date: 20241016
  Serious: No
  Sender: DOMPE FARMACEUTICI
  Company Number: US-FARMAPROD-202210-1959

PATIENT
  Age: 81 Year
  Sex: Female

DRUGS (25)
  1. OXERVATE [Suspect]
     Active Substance: CENEGERMIN-BKBJ
     Indication: Neurotrophic keratopathy
     Route: 047
     Dates: start: 20220927, end: 20221121
  2. OXERVATE [Suspect]
     Active Substance: CENEGERMIN-BKBJ
     Route: 047
     Dates: start: 20230912
  3. OXERVATE [Suspect]
     Active Substance: CENEGERMIN-BKBJ
  4. OXERVATE [Suspect]
     Active Substance: CENEGERMIN-BKBJ
  5. OXERVATE [Suspect]
     Active Substance: CENEGERMIN-BKBJ
  6. OXERVATE [Suspect]
     Active Substance: CENEGERMIN-BKBJ
  7. OXERVATE [Suspect]
     Active Substance: CENEGERMIN-BKBJ
  8. VERAPAMIL HYDROCHLORIDE [Concomitant]
     Active Substance: VERAPAMIL HYDROCHLORIDE
  9. RESTASIS [Concomitant]
     Active Substance: CYCLOSPORINE
  10. SYSTANE (HYPROMELLOSE 2910 (4000 MPA.S)) [Concomitant]
     Active Substance: HYPROMELLOSE 2910 (4000 MPA.S)
     Dosage: 0.3 %-0.4%
  11. REFRESH LIQUIGEL [Concomitant]
     Active Substance: CARBOXYMETHYLCELLULOSE SODIUM
     Dosage: DROP LIQUID GEL
  12. FLAXSEED [Concomitant]
     Active Substance: FLAX SEED
  13. VITAMINS [Concomitant]
     Active Substance: VITAMINS
     Dosage: GUMMIES
  14. PROBIOTICS NOS [Concomitant]
     Active Substance: PROBIOTICS NOS
     Dosage: 10 BILLION CELL
  15. VITAMIN D3 [Concomitant]
     Active Substance: CHOLECALCIFEROL
  16. ASCORBIC ACID [Concomitant]
     Active Substance: ASCORBIC ACID
  17. GAS RELIEF [Concomitant]
     Active Substance: DIMETHICONE
  18. TYLENOL [Concomitant]
     Active Substance: ACETAMINOPHEN
  19. NIVA-FOL [Concomitant]
     Dosage: 2-2.5-25 MG
  20. WESTAB MAX [Concomitant]
     Dosage: 2-2.5-25 MG
  21. OPTASE [Concomitant]
  22. PREDNISOLONE-BROMFENAC [Concomitant]
  23. ARTIFICIAL TEARS [Concomitant]
     Dosage: 0.1%-0.3%
  24. CALCIUM [Concomitant]
     Active Substance: CALCIUM
     Dosage: 500 (1250)
  25. ESTRADIOL [Concomitant]
     Active Substance: ESTRADIOL

REACTIONS (8)
  - Dry eye [Unknown]
  - Lacrimation increased [Unknown]
  - Accidental overdose [Unknown]
  - Device use issue [Unknown]
  - Eye inflammation [Unknown]
  - Vision blurred [Unknown]
  - Eye pain [Unknown]
  - Product dose omission issue [Unknown]

NARRATIVE: CASE EVENT DATE: 20231102
